FAERS Safety Report 21103292 (Version 2)
Quarter: 2022Q3

REPORT INFORMATION
  Report Type: Report from Study
  Country: IT (occurrence: IT)
  Receive Date: 20220720
  Receipt Date: 20220802
  Transmission Date: 20221026
  Serious: Yes (Hospitalization)
  Sender: FDA-Public Use
  Company Number: IT-ROCHE-3141603

PATIENT
  Age: 68 Year
  Sex: Female
  Weight: 79.9 kg

DRUGS (8)
  1. RITUXIMAB [Suspect]
     Active Substance: RITUXIMAB
     Indication: Non-Hodgkin^s lymphoma
     Dosage: ON 16/MAY/2022, RECEIVED THE LAST DOSE OF RITUXIMAB PRIOR TO EVENT ONSET AT A DOSE OF 500 MG/M2/MONT
     Route: 041
     Dates: start: 20220125, end: 20220516
  2. IDELALISIB [Suspect]
     Active Substance: IDELALISIB
     Indication: Non-Hodgkin^s lymphoma
     Dosage: ON 30/MAY/2022 RECEIVED THE LAST DOSE OF IDELALISIB PRIOR TO EVENT ONSET AT A DOSE OF 150 MG, ORALLY
     Route: 048
     Dates: start: 20220125, end: 20220530
  3. AZITHROMYCIN [Concomitant]
     Active Substance: AZITHROMYCIN
     Dosage: UNK
     Dates: start: 20220627
  4. SULFAMETHOXAZOLE\TRIMETHOPRIM [Concomitant]
     Active Substance: SULFAMETHOXAZOLE\TRIMETHOPRIM
     Dates: start: 20200114
  5. ALLOPURINOL [Concomitant]
     Active Substance: ALLOPURINOL
     Dates: start: 20201014
  6. LEVOFLOXACIN [Concomitant]
     Active Substance: LEVOFLOXACIN
  7. MONOCLONAL ANTIBODIES, GRANULOCYTE [Concomitant]
     Dosage: UNK
     Dates: start: 20220603
  8. OXYGEN [Concomitant]
     Active Substance: OXYGEN
     Dosage: UNK
     Dates: start: 20220629

REACTIONS (1)
  - Pneumonitis [Recovering/Resolving]

NARRATIVE: CASE EVENT DATE: 20220629
